FAERS Safety Report 23864326 (Version 2)
Quarter: 2024Q2

REPORT INFORMATION
  Report Type: Spontaneous
  Country: US (occurrence: US)
  Receive Date: 20240516
  Receipt Date: 20240528
  Transmission Date: 20240716
  Serious: Yes (Other)
  Sender: FDA-Public Use
  Company Number: US-TEVA-VS-3197700

PATIENT
  Age: 36 Year
  Sex: Male

DRUGS (4)
  1. POSACONAZOLE [Interacting]
     Active Substance: POSACONAZOLE
     Indication: Antifungal prophylaxis
     Route: 065
  2. PAXLOVID [Interacting]
     Active Substance: NIRMATRELVIR\RITONAVIR
     Indication: COVID-19
     Route: 065
  3. TACROLIMUS [Interacting]
     Active Substance: TACROLIMUS
     Indication: Immunosuppressant drug therapy
     Dosage: IMMEDIATE-RELEASE
     Route: 048
  4. TACROLIMUS [Interacting]
     Active Substance: TACROLIMUS
     Indication: Immunosuppressant drug therapy
     Dosage: 3MG EVERY MORNING AND 2.5MG EVERY NIGHT IMMEDIATE-RELEASE
     Route: 048

REACTIONS (2)
  - Immunosuppressant drug level increased [Recovered/Resolved]
  - Drug interaction [Recovered/Resolved]
